FAERS Safety Report 8131090-0 (Version None)
Quarter: 2012Q1

REPORT INFORMATION
  Report Type: 
  Country: None (occurrence: None)
  Receive Date: 20120213
  Receipt Date: 20120206
  Transmission Date: 20120608
  Serious: Yes (Other)
  Sender: FDA-Public Use
  Company Number: US-SP-2011-10823

PATIENT
  Sex: Female

DRUGS (4)
  1. ZYRTEC [Concomitant]
     Indication: RHINITIS ALLERGIC
  2. TUBERCULIN NOS [Suspect]
     Indication: TUBERCULIN TEST
     Route: 065
     Dates: start: 20070828, end: 20070828
  3. ADVAIR DISKUS 100/50 [Concomitant]
     Indication: ASTHMA
  4. ADACEL [Suspect]
     Indication: IMMUNISATION
     Route: 065
     Dates: start: 20070828, end: 20070828

REACTIONS (5)
  - PERTUSSIS [None]
  - FATIGUE [None]
  - NASAL CONGESTION [None]
  - COUGH [None]
  - VACCINATION FAILURE [None]
